FAERS Safety Report 24344903 (Version 1)
Quarter: 2024Q3

REPORT INFORMATION
  Report Type: Spontaneous
  Country: ES (occurrence: ES)
  Receive Date: 20240920
  Receipt Date: 20240920
  Transmission Date: 20241017
  Serious: Yes (Life-Threatening, Other)
  Sender: MYLAN
  Company Number: ES-HIKMA PHARMACEUTICALS-ES-H14001-24-08178

PATIENT
  Sex: Female

DRUGS (3)
  1. OXALIPLATIN [Suspect]
     Active Substance: OXALIPLATIN
     Indication: Rectal cancer stage IV
     Dosage: UNK (0.05 MG/ML)
     Route: 023
  2. OXALIPLATIN [Suspect]
     Active Substance: OXALIPLATIN
     Dosage: UNK (0.5 MG/ML)
     Route: 023
  3. OXALIPLATIN [Suspect]
     Active Substance: OXALIPLATIN
     Dosage: UNK (5 MG/ML)
     Route: 023

REACTIONS (2)
  - Anaphylactic reaction [Unknown]
  - Kounis syndrome [Unknown]
